FAERS Safety Report 16182870 (Version 1)
Quarter: 2019Q2

REPORT INFORMATION
  Report Type: Spontaneous
  Country: US (occurrence: US)
  Receive Date: 20190307
  Receipt Date: 20190307
  Transmission Date: 20190711
  Serious: No
  Sender: FDA-Public Use
  Company Number: None

PATIENT
  Age: 32 Year
  Sex: Male

DRUGS (1)
  1. NOVAREL [Suspect]
     Active Substance: CHORIOGONADOTROPIN ALFA
     Dates: start: 201901

REACTIONS (3)
  - Pain [None]
  - Therapy cessation [None]
  - Vomiting [None]

NARRATIVE: CASE EVENT DATE: 20190207
